FAERS Safety Report 14056512 (Version 1)
Quarter: 2017Q4

REPORT INFORMATION
  Report Type: Spontaneous
  Country: US (occurrence: US)
  Receive Date: 20171006
  Receipt Date: 20171006
  Transmission Date: 20180321
  Serious: No
  Sender: FDA-Public Use
  Company Number: US-ASTRAZENECA-2017SF00569

PATIENT
  Age: 26066 Day
  Sex: Female
  Weight: 56.7 kg

DRUGS (4)
  1. OXYGEN. [Concomitant]
     Active Substance: OXYGEN
  2. BEVESPI AEROSPHERE [Suspect]
     Active Substance: FORMOTEROL FUMARATE\GLYCOPYRROLATE
     Indication: CHRONIC OBSTRUCTIVE PULMONARY DISEASE
     Dosage: 9/4.8 MCG. 2 PUFFS, TWO TIMES A DAY
     Route: 055
     Dates: start: 20170812, end: 20170812
  3. BEVESPI AEROSPHERE [Suspect]
     Active Substance: FORMOTEROL FUMARATE\GLYCOPYRROLATE
     Indication: PNEUMONIA
     Dosage: 9/4.8 MCG. 2 PUFFS, TWO TIMES A DAY
     Route: 055
     Dates: start: 20170812, end: 20170812
  4. DOXEPIN [Concomitant]
     Active Substance: DOXEPIN
     Indication: SLEEP DISORDER
     Dosage: 75.0MG AS REQUIRED
     Route: 048

REACTIONS (7)
  - Swollen tongue [Unknown]
  - Dysarthria [Unknown]
  - Feeling abnormal [Unknown]
  - Hypersensitivity [Unknown]
  - Off label use [Unknown]
  - Tension [Unknown]
  - Product use issue [Unknown]

NARRATIVE: CASE EVENT DATE: 20170812
